FAERS Safety Report 10978203 (Version 2)
Quarter: 2015Q2

REPORT INFORMATION
  Report Type: Spontaneous
  Country: ES (occurrence: ES)
  Receive Date: 20150402
  Receipt Date: 20150408
  Transmission Date: 20150821
  Serious: Yes (Hospitalization, Other)
  Sender: FDA-Public Use
  Company Number: ES-009507513-1503ESP013521

PATIENT
  Age: 59 Year
  Sex: Male

DRUGS (3)
  1. PEGINTERFERON ALFA-2A [Suspect]
     Active Substance: PEGINTERFERON ALFA-2A
     Indication: CHRONIC HEPATITIS C
     Dosage: 12 WEEKS + 3 DAYS
  2. TELAPREVIR [Suspect]
     Active Substance: TELAPREVIR
     Indication: CHRONIC HEPATITIS C
     Dosage: 12 WEEKS
  3. RIBAVIRIN. [Suspect]
     Active Substance: RIBAVIRIN
     Indication: CHRONIC HEPATITIS C
     Dosage: 1000, 12 WEEKS + 3 DAYS
     Route: 048

REACTIONS (2)
  - Staphylococcal sepsis [Recovered/Resolved]
  - Meningitis bacterial [Recovered/Resolved]
